FAERS Safety Report 5211271-6 (Version None)
Quarter: 2006Q4

REPORT INFORMATION
  Report Type: 
  Country: None (occurrence: None)
  Receive Date: 20061114
  Receipt Date: 20060928
  Transmission Date: 20070319
  Serious: No
  Sender: FDA-Public Use
  Company Number: S06-USA-03964-01

PATIENT
  Age: 92 Year
  Sex: Female

DRUGS (11)
  1. NAMENDA [Suspect]
     Indication: DEMENTIA ALZHEIMER'S TYPE
     Dates: start: 20060801, end: 20060801
  2. NAMENDA [Suspect]
     Indication: DEMENTIA ALZHEIMER'S TYPE
     Dosage: 20 MG QAM PO
     Route: 048
     Dates: start: 20060801
  3. NAMENDA [Suspect]
     Indication: DEMENTIA ALZHEIMER'S TYPE
     Dosage: 5 MG QD PO
     Route: 048
  4. NAMENDA [Suspect]
     Indication: DEMENTIA ALZHEIMER'S TYPE
     Dosage: 5 MG BID PO
     Route: 048
  5. NAMENDA [Suspect]
     Indication: DEMENTIA ALZHEIMER'S TYPE
     Dosage: 15 MG QD PO
     Route: 048
  6. NAMENDA [Suspect]
     Indication: DEMENTIA ALZHEIMER'S TYPE
     Dosage: 10 MG BID PO
     Route: 048
     Dates: end: 20060705
  7. ARICEPT [Concomitant]
  8. DEPAKOTE [Concomitant]
  9. EXELON [Concomitant]
  10. BLOOD PRESSURE MEDICATION (NOS) [Concomitant]
  11. SYNTHROID [Concomitant]

REACTIONS (6)
  - ANGER [None]
  - ASTHENIA [None]
  - DECREASED APPETITE [None]
  - LETHARGY [None]
  - SOMNOLENCE [None]
  - TREMOR [None]
